FAERS Safety Report 19827494 (Version 1)
Quarter: 2021Q3

REPORT INFORMATION
  Report Type: Spontaneous
  Country: FR (occurrence: FR)
  Receive Date: 20210914
  Receipt Date: 20210914
  Transmission Date: 20211014
  Serious: Yes (Life-Threatening, Hospitalization, Other)
  Sender: FDA-Public Use
  Company Number: FR-BRISTOL-MYERS SQUIBB COMPANY-BMS-2021-091474

PATIENT
  Age: 94 Year
  Sex: Female
  Weight: 65.5 kg

DRUGS (1)
  1. ELIQUIS [Suspect]
     Active Substance: APIXABAN
     Indication: CEREBROVASCULAR ACCIDENT PROPHYLAXIS
     Dosage: 2.5 MILLIGRAM, 2 DAY
     Route: 048
     Dates: end: 20210831

REACTIONS (2)
  - Fall [Not Recovered/Not Resolved]
  - Cerebral haematoma [Not Recovered/Not Resolved]

NARRATIVE: CASE EVENT DATE: 20210831
